FAERS Safety Report 5734912-3 (Version None)
Quarter: 2008Q2

REPORT INFORMATION
  Report Type: 
  Country: None (occurrence: None)
  Receive Date: 20080508
  Receipt Date: 20080508
  Transmission Date: 20081010
  Serious: No
  Sender: FDA-Public Use
  Company Number: None

PATIENT
  Sex: Male
  Weight: 79.3795 kg

DRUGS (1)
  1. CREST PRO HEALTH RINSE PROCTOR + GAMBLE [Suspect]
     Indication: GINGIVITIS
     Dates: start: 20080301, end: 20080507

REACTIONS (2)
  - ANGER [None]
  - TOOTH DISCOLOURATION [None]
